FAERS Safety Report 4536645-8 (Version None)
Quarter: 2004Q4

REPORT INFORMATION
  Report Type: 
  Country: None (occurrence: None)
  Receive Date: 20041220
  Receipt Date: 20041209
  Transmission Date: 20050328
  Serious: Yes (Other)
  Sender: FDA-Public Use
  Company Number: 2004111976

PATIENT
  Sex: 0

DRUGS (1)
  1. LINEZOLID TABLET (LINEZOLID) [Suspect]
     Indication: ENTEROCOCCAL INFECTION

REACTIONS (4)
  - DELIRIUM [None]
  - DIZZINESS [None]
  - LIVER DISORDER [None]
  - RENAL DISORDER [None]
